FAERS Safety Report 11561538 (Version 1)
Quarter: 2015Q3

REPORT INFORMATION
  Report Type: Spontaneous
  Country: IT (occurrence: IT)
  Receive Date: 20150928
  Receipt Date: 20150928
  Transmission Date: 20151125
  Serious: Yes (Hospitalization)
  Sender: FDA-Public Use
  Company Number: IT-PFIZER INC-2015318462

PATIENT
  Age: 24 Year
  Sex: Male
  Weight: 95 kg

DRUGS (3)
  1. TACHIPIRINA [Suspect]
     Active Substance: ACETAMINOPHEN
     Indication: TOOTHACHE
     Dosage: 500 MG, TOTAL
     Route: 048
     Dates: start: 20150912, end: 20150912
  2. OKI [Suspect]
     Active Substance: KETOPROFEN LYSINE
     Indication: TOOTHACHE
     Dosage: 80 MG, TOTAL
     Route: 048
     Dates: start: 20150912, end: 20150912
  3. AZITHROMYCIN [Suspect]
     Active Substance: AZITHROMYCIN ANHYDROUS
     Indication: TOOTH ABSCESS
     Dosage: 500 MG, TOTAL
     Route: 048
     Dates: start: 20150912, end: 20150912

REACTIONS (6)
  - Erythema [Recovering/Resolving]
  - Drug hypersensitivity [Recovering/Resolving]
  - Pruritus [Recovering/Resolving]
  - Localised oedema [Recovering/Resolving]
  - Rash [Recovering/Resolving]
  - Eye swelling [Recovering/Resolving]

NARRATIVE: CASE EVENT DATE: 20150913
